FAERS Safety Report 7348794-X (Version None)
Quarter: 2011Q1

REPORT INFORMATION
  Report Type: 
  Country: None (occurrence: None)
  Receive Date: 20110314
  Receipt Date: 20100830
  Transmission Date: 20110831
  Serious: Yes (Other)
  Sender: FDA-Public Use
  Company Number: US-BAYER-201026583NA

PATIENT
  Sex: Female
  Weight: 93.182 kg

DRUGS (3)
  1. OCELLA [Suspect]
     Indication: ORAL CONTRACEPTION
     Route: 048
     Dates: start: 20000101, end: 20090101
  2. YASMIN [Suspect]
     Indication: ORAL CONTRACEPTION
     Route: 048
     Dates: start: 20000101, end: 20090615
  3. YAZ [Suspect]
     Indication: ORAL CONTRACEPTION
     Route: 048
     Dates: end: 20090101

REACTIONS (6)
  - GASTROINTESTINAL DISORDER [None]
  - CHOLECYSTITIS CHRONIC [None]
  - GALLBLADDER CHOLESTEROLOSIS [None]
  - CHOLELITHIASIS [None]
  - NAUSEA [None]
  - PAIN [None]
